FAERS Safety Report 4688880-6 (Version None)
Quarter: 2005Q2

REPORT INFORMATION
  Report Type: 
  Country: None (occurrence: None)
  Receive Date: 20050613
  Receipt Date: 20050530
  Transmission Date: 20051028
  Serious: Yes (Hospitalization)
  Sender: FDA-Public Use
  Company Number: JP-JNJFOC-20050507106

PATIENT
  Sex: Male

DRUGS (5)
  1. LEVOFLOXACIN [Suspect]
     Dates: start: 20050501
  2. DOXAZOSIN [Concomitant]
  3. THYROXINE SODIUM [Concomitant]
  4. CALCIUM PHOSPHATE [Concomitant]
  5. DIURETICS [Concomitant]

REACTIONS (4)
  - BLOOD CREATINE PHOSPHOKINASE INCREASED [None]
  - BLOOD LACTATE DEHYDROGENASE INCREASED [None]
  - HYPOCALCAEMIA [None]
  - MYOGLOBINAEMIA [None]
